FAERS Safety Report 9009729 (Version 1)
Quarter: 2013Q1

REPORT INFORMATION
  Report Type: Report from Study
  Country: CA (occurrence: CA)
  Receive Date: 20130110
  Receipt Date: 20130110
  Transmission Date: 20140127
  Serious: Yes (Other)
  Sender: FDA-Public Use
  Company Number: CA-JNJFOC-20130102109

PATIENT
  Age: 48 Year
  Sex: Female
  Weight: 86 kg

DRUGS (8)
  1. REMICADE [Suspect]
     Indication: COLITIS ULCERATIVE
     Route: 042
     Dates: start: 200909
  2. MIRTAZAPINE [Concomitant]
     Route: 065
  3. METHOTREXATE [Concomitant]
     Route: 065
  4. CELEXA [Concomitant]
     Route: 065
  5. LORAZEPAM [Concomitant]
     Route: 065
  6. FOLIC ACID [Concomitant]
     Route: 065
  7. REMERON [Concomitant]
     Route: 065
  8. BIRTH CONTROL PILLS [Concomitant]
     Route: 065

REACTIONS (5)
  - Migraine [Unknown]
  - Chest pain [Unknown]
  - Hypoaesthesia [Unknown]
  - Sinusitis [Unknown]
  - Therapeutic response decreased [Unknown]
